FAERS Safety Report 8825101 (Version 2)
Quarter: 2012Q4

REPORT INFORMATION
  Report Type: 
  Country: FR (occurrence: FR)
  Receive Date: 20121004
  Receipt Date: 20121014
  Transmission Date: 20130627
  Serious: Yes (Other)
  Sender: FDA-Public Use
  Company Number: FR-TEVA-362245ISR

PATIENT
  Age: 57 Year
  Sex: Male

DRUGS (5)
  1. DOXORUBICIN [Suspect]
  2. BLEOMYCIN [Suspect]
  3. VINBLASTINE [Suspect]
  4. DOXORUBICIN [Suspect]
  5. DACARBAZINE [Suspect]

REACTIONS (2)
  - Histiocytosis haematophagic [Unknown]
  - Hodgkin^s disease [Unknown]
